FAERS Safety Report 13302657 (Version 1)
Quarter: 2017Q1

REPORT INFORMATION
  Report Type: Report from Study
  Country: CA (occurrence: CA)
  Receive Date: 20170307
  Receipt Date: 20170307
  Transmission Date: 20170428
  Serious: Yes (Other)
  Sender: FDA-Public Use
  Company Number: CA-JNJFOC-20161108592

PATIENT
  Age: 58 Year
  Sex: Female

DRUGS (1)
  1. IMBRUVICA [Suspect]
     Active Substance: IBRUTINIB
     Indication: CHRONIC LYMPHOCYTIC LEUKAEMIA
     Route: 048
     Dates: start: 20161006

REACTIONS (11)
  - Nasopharyngitis [Recovered/Resolved]
  - Musculoskeletal pain [Not Recovered/Not Resolved]
  - Fall [Recovered/Resolved]
  - Skin abrasion [Not Recovered/Not Resolved]
  - Arthralgia [Unknown]
  - Drug dose omission [Unknown]
  - Dizziness [Recovered/Resolved]
  - Pyrexia [Unknown]
  - Haemoptysis [Unknown]
  - Epistaxis [Unknown]
  - Contusion [Not Recovered/Not Resolved]

NARRATIVE: CASE EVENT DATE: 20161029
